FAERS Safety Report 9451003 (Version 1)
Quarter: 2013Q3

REPORT INFORMATION
  Report Type: Spontaneous
  Country: GB (occurrence: None)
  Receive Date: 20130807
  Receipt Date: 20130807
  Transmission Date: 20140515
  Serious: Yes (Disabling)
  Sender: FDA-Public Use
  Company Number: AUR-APL-2013-06360

PATIENT
  Age: 73 Year
  Sex: Male
  Weight: 85 kg

DRUGS (6)
  1. MIRTAZAPINE [Suspect]
     Indication: DEPRESSION
     Route: 048
     Dates: start: 20130301, end: 20130620
  2. AMLODIPINE [Concomitant]
  3. ASPIRIN [Concomitant]
  4. ATORVASTATIN [Concomitant]
  5. METFORMIN [Concomitant]
  6. RAMIPRIL [Concomitant]

REACTIONS (6)
  - Nystagmus [None]
  - Dizziness [None]
  - Balance disorder [None]
  - Metamorphopsia [None]
  - Tremor [None]
  - Wheelchair user [None]
